FAERS Safety Report 19371930 (Version 1)
Quarter: 2021Q2

REPORT INFORMATION
  Report Type: Spontaneous
  Country: DE (occurrence: DE)
  Receive Date: 20210604
  Receipt Date: 20210604
  Transmission Date: 20210717
  Serious: Yes (Hospitalization, Other)
  Sender: FDA-Public Use
  Company Number: DE-AUROBINDO-AUR-APL-2021-022992

PATIENT
  Age: 76 Year
  Sex: Female

DRUGS (10)
  1. URBASON [Concomitant]
     Active Substance: METHYLPREDNISOLONE
     Indication: PRODUCT USED FOR UNKNOWN INDICATION
     Dosage: 16 MILLIGRAM (1?0?0.5?0)
     Route: 065
  2. VERAPAMIL [Concomitant]
     Active Substance: VERAPAMIL HYDROCHLORIDE
     Indication: PRODUCT USED FOR UNKNOWN INDICATION
     Dosage: 40 MILLIGRAM (1?0?1?0)
     Route: 065
  3. ULTIBRO BREEZHALER [Concomitant]
     Active Substance: GLYCOPYRRONIUM\INDACATEROL
     Indication: PRODUCT USED FOR UNKNOWN INDICATION
     Dosage: UNK (1?0?0?0, DOSIERAEROSOL)
     Route: 065
  4. ROFLUMILAST. [Concomitant]
     Active Substance: ROFLUMILAST
     Indication: PRODUCT USED FOR UNKNOWN INDICATION
     Dosage: 250 MICROGRAM (1?0?0?0)
     Route: 065
  5. URBASON [Concomitant]
     Active Substance: METHYLPREDNISOLONE
     Dosage: 16 MILLIGRAM (0.5?0?0?0)
     Route: 065
  6. PANTOPRAZOLE [Concomitant]
     Active Substance: PANTOPRAZOLE
     Indication: PRODUCT USED FOR UNKNOWN INDICATION
     Dosage: 20 MILLIGRAM (2?0?0?0)
     Route: 065
  7. CLOPIDOGREL [Suspect]
     Active Substance: CLOPIDOGREL BISULFATE
     Indication: PRODUCT USED FOR UNKNOWN INDICATION
     Dosage: 75 MILLIGRAM (1?0?0?0)
     Route: 065
  8. APIXABAN [Suspect]
     Active Substance: APIXABAN
     Indication: PRODUCT USED FOR UNKNOWN INDICATION
     Dosage: 5 MILLIGRAM (1?0?1?0)
     Route: 065
  9. URBASON [Concomitant]
     Active Substance: METHYLPREDNISOLONE
     Dosage: 16 MILLIGRAM (0.5?0?0?0)
     Route: 065
  10. TORASEMIDE [Concomitant]
     Active Substance: TORSEMIDE
     Indication: PRODUCT USED FOR UNKNOWN INDICATION
     Dosage: 10 MILLIGRAM ( 1?0?0?0)
     Route: 065

REACTIONS (2)
  - Haematochezia [Recovering/Resolving]
  - Abdominal pain upper [Recovering/Resolving]
